FAERS Safety Report 7312898-8 (Version None)
Quarter: 2011Q1

REPORT INFORMATION
  Report Type: 
  Country: None (occurrence: None)
  Receive Date: 20110224
  Receipt Date: 20110215
  Transmission Date: 20110831
  Serious: Yes (Death, Hospitalization)
  Sender: FDA-Public Use
  Company Number: US-ROCHE-756759

PATIENT
  Sex: Male
  Weight: 56.2 kg

DRUGS (20)
  1. XALATAN [Concomitant]
     Indication: INTRAOCULAR PRESSURE INCREASED
     Dosage: TDD:15OU
     Dates: start: 20081001
  2. VICODIN [Concomitant]
     Indication: PAIN
     Dosage: DOSE:5/325. START DATE:11/23
     Route: 048
  3. BENADRYL [Concomitant]
     Indication: RASH
     Dosage: START DATE : 11/10 FREQUENCY:QD
     Route: 048
     Dates: start: 20101101
  4. LANTUS [Concomitant]
     Indication: DIABETES MELLITUS
     Dosage: TDD:100/ML 15U.DRUG NAME: LANTUS INSULIN
     Route: 058
     Dates: start: 20040401
  5. METAMUCIL-2 [Concomitant]
     Indication: CONSTIPATION
     Dosage: START DATE:12/2 FREQUENCY: QD
     Route: 048
  6. CARBOPLATIN [Suspect]
     Route: 042
     Dates: start: 20101130
  7. LASIX [Concomitant]
     Dosage: FREQUENCY:QD
     Route: 048
     Dates: start: 20060801
  8. MILES MIXTURE [Concomitant]
     Dosage: DOSE:#1 START DATE: 12/28
     Route: 048
  9. DOCETAXEL [Suspect]
     Dosage: DRUG NAME: TAXOTERE
     Route: 042
     Dates: start: 20101130
  10. RAMIPRIL [Concomitant]
     Indication: PREDISPOSITION TO DISEASE
     Dosage: FREQUENCY:QD
     Route: 048
     Dates: start: 20050501
  11. COMPAZINE [Concomitant]
     Indication: NAUSEA
     Dosage: START DATE 11/30
     Route: 048
  12. MAGNESIUM OXIDE [Concomitant]
     Indication: CONSTIPATION
     Dosage: FREQUENCY:QD.START DATE 12/4
     Route: 048
  13. BEVACIZUMAB [Suspect]
     Route: 042
     Dates: start: 20101130
  14. ASA [Concomitant]
     Indication: PAIN
     Dosage: FREQUENCY:QD
     Route: 048
     Dates: start: 20051001
  15. COMBIVENT [Concomitant]
     Dosage: DOSE:15/103
     Route: 055
     Dates: start: 20060601
  16. LIPITOR [Concomitant]
     Indication: BLOOD CHOLESTEROL INCREASED
     Dosage: FREQUENCY:QD
     Route: 048
     Dates: start: 20030501
  17. VITAMINE D [Concomitant]
     Dosage: FREQUENCY:QD
     Route: 048
     Dates: start: 20080601
  18. DIGOXIN [Concomitant]
     Dosage: INDICATION:CARDIAC FREQUENCY:QD
     Route: 048
     Dates: start: 20090101
  19. MEGACE [Concomitant]
     Dosage: START DATE;1/4
     Route: 048
  20. DECADRON [Concomitant]
     Dosage: START DATE:11/30
     Route: 048

REACTIONS (5)
  - HYPOKALAEMIA [None]
  - ASTHENIA [None]
  - DEHYDRATION [None]
  - PANCYTOPENIA [None]
  - DECREASED APPETITE [None]
